FAERS Safety Report 9641518 (Version 1)
Quarter: 2013Q4

REPORT INFORMATION
  Report Type: Report from Study
  Country: US (occurrence: US)
  Receive Date: 20131023
  Receipt Date: 20131023
  Transmission Date: 20140711
  Serious: No
  Sender: FDA-Public Use
  Company Number: US-ABBVIE-13P-163-1147681-00

PATIENT
  Sex: Female
  Weight: 58.11 kg

DRUGS (6)
  1. LUPRON DEPOT [Suspect]
     Indication: ENDOMETRIOSIS
     Route: 030
     Dates: start: 20130823
  2. PAXIL [Concomitant]
     Indication: MOOD ALTERED
  3. TRAMADOL [Concomitant]
     Indication: PAIN
  4. MINOCYCLINE [Concomitant]
     Indication: ACNE
  5. INTRAUTERINE DEVICE [Concomitant]
     Indication: CONTRACEPTION
  6. UNKNOWN MEDICATIONS [Concomitant]
     Indication: PRODUCT USED FOR UNKNOWN INDICATION

REACTIONS (4)
  - Arthralgia [Not Recovered/Not Resolved]
  - Pelvic pain [Not Recovered/Not Resolved]
  - Vaginal haemorrhage [Not Recovered/Not Resolved]
  - Acne [Not Recovered/Not Resolved]
